FAERS Safety Report 6023673-9 (Version None)
Quarter: 2008Q4

REPORT INFORMATION
  Report Type: 
  Country: None (occurrence: None)
  Receive Date: 20081223
  Receipt Date: 20081211
  Transmission Date: 20090506
  Serious: Yes (Hospitalization)
  Sender: FDA-Public Use
  Company Number: 2008S1022009

PATIENT
  Age: 99 Year
  Sex: Female

DRUGS (6)
  1. ENALAPRIL MALEATE [Suspect]
     Dosage: 10 MG; DAILY; ORAL
     Route: 048
     Dates: start: 20081111, end: 20081111
  2. RISORDAN [Concomitant]
  3. XANAX [Concomitant]
  4. LASILIX [Concomitant]
  5. MEDIATENSYL [Concomitant]
  6. AMLODIPINE [Concomitant]

REACTIONS (5)
  - DRUG DISPENSING ERROR [None]
  - HYPOTENSION [None]
  - LOSS OF CONSCIOUSNESS [None]
  - MALAISE [None]
  - WRONG DRUG ADMINISTERED [None]
